FAERS Safety Report 6258568-9 (Version None)
Quarter: 2009Q3

REPORT INFORMATION
  Report Type: 
  Country: None (occurrence: None)
  Receive Date: 20090707
  Receipt Date: 20090703
  Transmission Date: 20100115
  Serious: Yes (Hospitalization)
  Sender: FDA-Public Use
  Company Number: IT-ROCHE-639943

PATIENT
  Sex: Female

DRUGS (13)
  1. NAPROSYN [Suspect]
     Indication: ARTHRALGIA
     Dosage: FORMULATION : GRANULAR SUSPENSION
     Route: 048
     Dates: start: 20090101, end: 20090422
  2. SINTROM [Suspect]
     Indication: ATRIAL FIBRILLATION
     Dosage: DOSE REPORTED AS 1 DF AS NEEDED
     Route: 048
     Dates: start: 20090101, end: 20090422
  3. DELTACORTENE [Suspect]
     Route: 048
     Dates: start: 20090101, end: 20090422
  4. BROMAZEPAM [Concomitant]
  5. DRONAL [Concomitant]
     Indication: OSTEOPOROSIS
     Dosage: DRUG NAME DRONAL 70.
     Route: 048
     Dates: start: 20090101, end: 20090422
  6. NATECAL D3 [Concomitant]
     Indication: OSTEOPOROSIS
     Dosage: DOSE-2 DF
     Route: 048
     Dates: start: 20090101, end: 20090422
  7. ISOPTIN 40 [Concomitant]
     Dosage: ISOPTIN 40 MG COATED TABLETS DOSE -3 DF
     Route: 048
     Dates: start: 20090101, end: 20090422
  8. THEO-DUR [Concomitant]
     Indication: BRONCHOPNEUMOPATHY
     Route: 048
     Dates: start: 20090101, end: 20090422
  9. VENTOLIN [Concomitant]
  10. SYNACTHEN [Concomitant]
  11. ANTRA [Concomitant]
  12. KCL-RETARD [Concomitant]
  13. FLUIMUCIL [Concomitant]

REACTIONS (3)
  - ANAEMIA [None]
  - GASTROINTESTINAL HAEMORRHAGE [None]
  - INTERNATIONAL NORMALISED RATIO INCREASED [None]
